FAERS Safety Report 6589626-7 (Version None)
Quarter: 2010Q1

REPORT INFORMATION
  Report Type: 
  Country: None (occurrence: None)
  Receive Date: 20100212
  Receipt Date: 20100204
  Transmission Date: 20100710
  Serious: Yes (Other)
  Sender: FDA-Public Use
  Company Number: 2010AL000751

PATIENT
  Age: 11 Year
  Sex: Female

DRUGS (1)
  1. HYDROCORTISONE CREAM USP, 2.5% (ALPHARMA) [Suspect]

REACTIONS (2)
  - PSYCHOTIC DISORDER [None]
  - SUICIDAL IDEATION [None]
